FAERS Safety Report 10023788 (Version 1)
Quarter: 2014Q1

REPORT INFORMATION
  Report Type: Spontaneous
  Country: US (occurrence: None)
  Receive Date: 20140319
  Receipt Date: 20140319
  Transmission Date: 20141002
  Serious: Yes (Other)
  Sender: FDA-Public Use
  Company Number: None

PATIENT
  Age: 73 Year
  Sex: Female
  Weight: 61.24 kg

DRUGS (5)
  1. LOSARTAN [Suspect]
     Indication: HYPERTENSION
     Dosage: 1 TABLET
     Route: 048
  2. MULTIVITAMIN [Concomitant]
  3. CALCIUM [Concomitant]
  4. VIT B-100 [Concomitant]
  5. BIOTIN [Concomitant]

REACTIONS (3)
  - Lip swelling [None]
  - Dyspnoea [None]
  - Palatal oedema [None]
